FAERS Safety Report 10186407 (Version 1)
Quarter: 2014Q2

REPORT INFORMATION
  Report Type: Spontaneous
  Country: US (occurrence: US)
  Receive Date: 20140521
  Receipt Date: 20140521
  Transmission Date: 20141212
  Serious: No
  Sender: FDA-Public Use
  Company Number: US-ASTRAZENECA-2013SE58666

PATIENT
  Age: 54 Year
  Sex: Female
  Weight: 63.5 kg

DRUGS (3)
  1. PULMICORT FLEXHALER [Suspect]
     Indication: ASTHMA
     Route: 055
     Dates: start: 201303
  2. VENTOLIN [Concomitant]
     Indication: ASTHMA
     Dosage: PRN
     Route: 055
  3. VENTOLIN [Concomitant]
     Indication: ASTHMA
     Route: 055

REACTIONS (4)
  - Dyspnoea [Unknown]
  - Chest discomfort [Unknown]
  - Condition aggravated [Unknown]
  - Product quality issue [Unknown]
